FAERS Safety Report 11201295 (Version 1)
Quarter: 2015Q2

REPORT INFORMATION
  Report Type: Spontaneous
  Country: IT (occurrence: IT)
  Receive Date: 20150619
  Receipt Date: 20150619
  Transmission Date: 20150821
  Serious: Yes (Hospitalization)
  Sender: FDA-Public Use
  Company Number: IT-HOSPIRA-2641935

PATIENT
  Age: 50 Year
  Sex: Female

DRUGS (2)
  1. CYTARABINE. [Suspect]
     Active Substance: CYTARABINE
     Indication: ACUTE MYELOID LEUKAEMIA (IN REMISSION)
     Dosage: DAILY
     Route: 042
     Dates: start: 20090716, end: 20090718
  2. IDARUBICIN [Suspect]
     Active Substance: IDARUBICIN
     Indication: ACUTE MYELOID LEUKAEMIA (IN REMISSION)
     Dosage: EVERY OTHER DAY
     Route: 042
     Dates: start: 20090716, end: 20090718

REACTIONS (2)
  - Febrile neutropenia [Recovered/Resolved]
  - Device related sepsis [Recovered/Resolved]

NARRATIVE: CASE EVENT DATE: 20090721
